FAERS Safety Report 4993340-9 (Version None)
Quarter: 2006Q2

REPORT INFORMATION
  Report Type: 
  Country: None (occurrence: None)
  Receive Date: 20060505
  Receipt Date: 20060424
  Transmission Date: 20061013
  Serious: Yes (Hospitalization)
  Sender: FDA-Public Use
  Company Number: PHEH2006US05343

PATIENT
  Age: 74 Year
  Sex: Female

DRUGS (1)
  1. EXJADE [Suspect]
     Indication: BLOOD IRON INCREASED
     Dates: start: 20060410, end: 20060418

REACTIONS (10)
  - ARTHRALGIA [None]
  - DYSGEUSIA [None]
  - DYSPNOEA [None]
  - GENERALISED OEDEMA [None]
  - PAIN [None]
  - PHARYNGEAL OEDEMA [None]
  - RASH GENERALISED [None]
  - RASH PRURITIC [None]
  - SWOLLEN TONGUE [None]
  - VOMITING [None]
